FAERS Safety Report 6936147-5 (Version None)
Quarter: 2010Q3

REPORT INFORMATION
  Report Type: 
  Country: None (occurrence: None)
  Receive Date: 20100823
  Receipt Date: 20100823
  Transmission Date: 20110219
  Serious: Yes (Other)
  Sender: FDA-Public Use
  Company Number: None

PATIENT
  Age: 8 Year
  Sex: Male
  Weight: 41.7309 kg

DRUGS (1)
  1. CHILDREN'S MOTRIN [Suspect]
     Indication: PAIN IN EXTREMITY
     Dosage: 3TSP EVERY 6 PO
     Route: 048
     Dates: start: 20100814, end: 20100816

REACTIONS (7)
  - ABDOMINAL PAIN [None]
  - DIARRHOEA [None]
  - HEADACHE [None]
  - HYPOPHAGIA [None]
  - PRODUCT QUALITY ISSUE [None]
  - PYREXIA [None]
  - VOMITING [None]
